FAERS Safety Report 4992820-X (Version None)
Quarter: 2006Q2

REPORT INFORMATION
  Report Type: 
  Country: None (occurrence: None)
  Receive Date: 20060504
  Receipt Date: 20051208
  Transmission Date: 20061013
  Serious: Yes (Hospitalization)
  Sender: FDA-Public Use
  Company Number: US-MERCK-0512USA01570

PATIENT
  Age: 78 Year
  Sex: Female
  Weight: 75 kg

DRUGS (6)
  1. VIOXX [Suspect]
     Indication: PAIN
     Route: 048
     Dates: start: 20020801, end: 20021201
  2. ASPIRIN [Concomitant]
     Route: 048
     Dates: start: 20020801, end: 20021201
  3. TRIAZOLAM [Concomitant]
     Route: 065
     Dates: start: 20020801, end: 20021201
  4. SYNVISC [Concomitant]
     Route: 065
     Dates: start: 20020801, end: 20021201
  5. IBUPROFEN [Concomitant]
     Route: 065
     Dates: start: 20020801, end: 20021201
  6. [COMPOSITION UNSPECIFIED] [Concomitant]
     Route: 065
     Dates: start: 20020801, end: 20021201

REACTIONS (1)
  - CEREBROVASCULAR ACCIDENT [None]
